FAERS Safety Report 5352196-5 (Version None)
Quarter: 2007Q2

REPORT INFORMATION
  Report Type: 
  Country: None (occurrence: None)
  Receive Date: 20070606
  Receipt Date: 20070521
  Transmission Date: 20071010
  Serious: Yes (Other)
  Sender: FDA-Public Use
  Company Number: 2007000836

PATIENT
  Age: 70 Year
  Sex: Male

DRUGS (2)
  1. TARCEVA [Suspect]
     Indication: METASTATIC BRONCHIAL CARCINOMA
     Dosage: 150 MG (QD), ORAL
     Route: 048
  2. ANTIVITAMIN K [Concomitant]

REACTIONS (2)
  - PULMONARY EMBOLISM [None]
  - ULCER HAEMORRHAGE [None]
